FAERS Safety Report 18180164 (Version 5)
Quarter: 2020Q4

REPORT INFORMATION
  Report Type: Report from Study
  Country: US (occurrence: US)
  Receive Date: 20200821
  Receipt Date: 20201209
  Transmission Date: 20210113
  Serious: No
  Sender: FDA-Public Use
  Company Number: NVSC2020US230127

PATIENT
  Sex: Female

DRUGS (3)
  1. COSENTYX [Suspect]
     Active Substance: SECUKINUMAB
     Indication: PRODUCT USED FOR UNKNOWN INDICATION
     Dosage: 150 MG, Q2W
     Route: 065
  2. COSENTYX [Suspect]
     Active Substance: SECUKINUMAB
     Dosage: 150 MG, QMO
     Route: 065
  3. HUMIRA [Suspect]
     Active Substance: ADALIMUMAB
     Indication: PRODUCT USED FOR UNKNOWN INDICATION
     Dosage: UNK
     Route: 065

REACTIONS (14)
  - Immune system disorder [Unknown]
  - Dyskinesia [Unknown]
  - Incontinence [Unknown]
  - Arthritis [Unknown]
  - Gait disturbance [Unknown]
  - General physical health deterioration [Unknown]
  - Decreased activity [Unknown]
  - Back disorder [Unknown]
  - Tendonitis [Unknown]
  - Inappropriate schedule of product administration [Unknown]
  - Joint swelling [Unknown]
  - Intervertebral disc protrusion [Unknown]
  - Urinary incontinence [Unknown]
  - Drug ineffective [Unknown]
